FAERS Safety Report 9147093 (Version 2)
Quarter: 2013Q4

REPORT INFORMATION
  Report Type: Spontaneous
  Country: GB (occurrence: None)
  Receive Date: 20130131
  Receipt Date: 20131001
  Transmission Date: 20140711
  Serious: Yes (Death)
  Sender: FDA-Public Use
  Company Number: GER/UKI/13/0027639

PATIENT
  Age: 41 Year
  Sex: Male

DRUGS (2)
  1. FLUOXETINE (FLUOXETINE) [Suspect]
     Indication: DEPRESSION
     Dosage: 20  MG,  ORAL?02/22/2012  -  03/01/2012
     Route: 048
     Dates: start: 20120222, end: 20120301
  2. ZOPICLONE (ZOPICLONE) [Concomitant]

REACTIONS (2)
  - Completed suicide [None]
  - Asphyxia [None]
